FAERS Safety Report 14608048 (Version 7)
Quarter: 2018Q3

REPORT INFORMATION
  Report Type: Spontaneous
  Country: US (occurrence: US)
  Receive Date: 20180307
  Receipt Date: 20180808
  Transmission Date: 20181010
  Serious: No
  Sender: FDA-Public Use
  Company Number: US-PFIZER INC-2018091006

PATIENT
  Age: 65 Year
  Sex: Female
  Weight: 65 kg

DRUGS (3)
  1. PREDNISONE. [Concomitant]
     Active Substance: PREDNISONE
     Indication: RHEUMATOID ARTHRITIS
     Dosage: UNK
  2. XELJANZ [Suspect]
     Active Substance: TOFACITINIB CITRATE
     Dosage: 5 MG, 2X/DAY
  3. XELJANZ [Suspect]
     Active Substance: TOFACITINIB CITRATE
     Indication: RHEUMATOID ARTHRITIS
     Dosage: 5 MG, TWICE A DAY, [FOR 3 WEEKS]
     Route: 048
     Dates: start: 201802

REACTIONS (7)
  - Diarrhoea [Unknown]
  - Drug ineffective [Unknown]
  - Influenza [Recovering/Resolving]
  - Nausea [Not Recovered/Not Resolved]
  - Malaise [Recovering/Resolving]
  - Blood cholesterol increased [Unknown]
  - Vomiting [Unknown]

NARRATIVE: CASE EVENT DATE: 2018
